FAERS Safety Report 16364513 (Version 4)
Quarter: 2019Q4

REPORT INFORMATION
  Report Type: Spontaneous
  Country: US (occurrence: US)
  Receive Date: 20190528
  Receipt Date: 20191115
  Transmission Date: 20200122
  Serious: No
  Sender: FDA-Public Use
  Company Number: US-ASTRAZENECA-2019SE69327

PATIENT
  Age: 26051 Day
  Sex: Female
  Weight: 106.6 kg

DRUGS (1)
  1. BYDUREON BCISE [Suspect]
     Active Substance: EXENATIDE
     Indication: DIABETES MELLITUS INADEQUATE CONTROL
     Route: 058
     Dates: start: 201903

REACTIONS (12)
  - Injection site haemorrhage [Unknown]
  - Device leakage [Unknown]
  - Injection site mass [Unknown]
  - Incorrect dose administered by device [Unknown]
  - Product label issue [Unknown]
  - Product dose omission [Unknown]
  - Contusion [Recovering/Resolving]
  - Injection site bruising [Not Recovered/Not Resolved]
  - Injection site pain [Unknown]
  - Product closure removal difficult [Unknown]
  - Device use issue [Unknown]
  - Needle issue [Unknown]

NARRATIVE: CASE EVENT DATE: 20190423
